FAERS Safety Report 7361730-5 (Version None)
Quarter: 2011Q1

REPORT INFORMATION
  Report Type: 
  Country: None (occurrence: None)
  Receive Date: 20110318
  Receipt Date: 20110210
  Transmission Date: 20110831
  Serious: Yes (Other)
  Sender: FDA-Public Use
  Company Number: JP-MERCK-1102USA02947

PATIENT
  Age: 54 Year
  Sex: Female

DRUGS (6)
  1. FOY [Concomitant]
     Route: 065
  2. INSULIN [Concomitant]
     Route: 065
  3. AMBISOME [Suspect]
     Indication: FUNGAL INFECTION
     Route: 042
     Dates: start: 20101019, end: 20101024
  4. PACETCOOL [Suspect]
     Indication: INFECTION
     Route: 042
     Dates: start: 20101013, end: 20101029
  5. PEPCID [Suspect]
     Indication: PROPHYLAXIS AGAINST GASTROINTESTINAL ULCER
     Route: 042
     Dates: start: 20101019, end: 20101112
  6. FUNGUARD [Concomitant]
     Route: 065
     Dates: start: 20101013

REACTIONS (1)
  - ATRIOVENTRICULAR BLOCK SECOND DEGREE [None]
